FAERS Safety Report 8257289-0 (Version None)
Quarter: 2012Q2

REPORT INFORMATION
  Report Type: 
  Country: None (occurrence: None)
  Receive Date: 20120403
  Receipt Date: 20120323
  Transmission Date: 20120825
  Serious: Yes (Hospitalization)
  Sender: FDA-Public Use
  Company Number: CA-JNJFOC-20120204577

PATIENT
  Sex: Female
  Weight: 54.3 kg

DRUGS (5)
  1. REMICADE [Suspect]
     Indication: COLITIS ULCERATIVE
     Dosage: HAS HAS 3RD INFUSION.
     Route: 042
  2. RABEPRAZOLE SODIUM [Concomitant]
     Route: 065
  3. YASMIN [Concomitant]
     Route: 065
  4. MESALAMINE [Concomitant]
     Route: 065
  5. IMURAN [Concomitant]
     Route: 065

REACTIONS (6)
  - ABDOMINAL PAIN UPPER [None]
  - INFUSION RELATED REACTION [None]
  - VOMITING [None]
  - NAUSEA [None]
  - DIZZINESS [None]
  - SOMNOLENCE [None]
